FAERS Safety Report 5102193-X (Version None)
Quarter: 2006Q3

REPORT INFORMATION
  Report Type: 
  Country: None (occurrence: None)
  Receive Date: 20060912
  Receipt Date: 20060831
  Transmission Date: 20061208
  Serious: Yes (Hospitalization)
  Sender: FDA-Public Use
  Company Number: US-BRISTOL-MYERS SQUIBB COMPANY-13494851

PATIENT
  Age: 47 Year
  Sex: Female
  Weight: 76 kg

DRUGS (5)
  1. ERBITUX [Suspect]
     Indication: COLORECTAL CANCER METASTATIC
     Route: 042
     Dates: start: 20060828, end: 20060828
  2. OXALIPLATIN [Suspect]
     Indication: COLORECTAL CANCER METASTATIC
     Route: 042
     Dates: start: 20060828, end: 20060828
  3. BENADRYL [Concomitant]
     Indication: PREMEDICATION
  4. ANZEMET [Concomitant]
     Indication: PREMEDICATION
  5. DEXAMETHASONE TAB [Concomitant]
     Indication: PREMEDICATION

REACTIONS (4)
  - ABDOMINAL PAIN [None]
  - BODY TEMPERATURE INCREASED [None]
  - EPISTAXIS [None]
  - HAEMATEMESIS [None]
